FAERS Safety Report 9026530 (Version 1)
Quarter: 2013Q1

REPORT INFORMATION
  Report Type: Spontaneous
  Country: DE (occurrence: None)
  Receive Date: 20130107
  Receipt Date: 20130107
  Transmission Date: 20140127
  Serious: Yes (Other)
  Sender: FDA-Public Use
  Company Number: DSA_61718_2013

PATIENT
  Age: 73 Year
  Sex: Male

DRUGS (4)
  1. FLUOROURACIL (FLUOROURACIL) [Suspect]
     Indication: OESOPHAGEAL CARCINOMA
     Dosage: (1000 MG/M2) (3 DAYS 21
  2. CISPLATIN (UNKNOWN) [Concomitant]
  3. THERAPEUTIC RADIOPHARMACEUTICALS (UNKNOWN) [Concomitant]
  4. BISOPROLOL (UNKNOWN) [Concomitant]

REACTIONS (5)
  - Cardiotoxicity [None]
  - Myocardial ischaemia [None]
  - Tachycardia [None]
  - Atrial fibrillation [None]
  - Ventricular extrasystoles [None]
